FAERS Safety Report 7297813-8 (Version None)
Quarter: 2011Q1

REPORT INFORMATION
  Report Type: 
  Country: None (occurrence: None)
  Receive Date: 20110217
  Receipt Date: 20110207
  Transmission Date: 20110831
  Serious: Yes (Other)
  Sender: FDA-Public Use
  Company Number: US-MYLANLABS-2010S1020635

PATIENT
  Age: 35 Year
  Sex: Female

DRUGS (2)
  1. LEVETIRACETAM [Suspect]
     Indication: CONVULSION
  2. LEVETIRACETAM [Suspect]
     Indication: EPILEPSY

REACTIONS (2)
  - CONVULSION [None]
  - HYPERSENSITIVITY [None]
